FAERS Safety Report 10305918 (Version 1)
Quarter: 2014Q3

REPORT INFORMATION
  Report Type: Spontaneous
  Country: US (occurrence: US)
  Receive Date: 20140715
  Receipt Date: 20140715
  Transmission Date: 20150326
  Serious: No
  Sender: FDA-Public Use
  Company Number: US-BAYER-2014-105705

PATIENT
  Age: 83 Year
  Sex: Female
  Weight: 87 kg

DRUGS (6)
  1. TIMOLOL [Concomitant]
     Active Substance: TIMOLOL
  2. ALEVE [Suspect]
     Active Substance: NAPROXEN SODIUM
     Indication: BACK PAIN
     Dosage: 2 DF, QD
     Route: 048
     Dates: start: 20140623
  3. CENTRUM SILVER [Concomitant]
     Active Substance: VITAMINS
  4. LATANOPROST. [Concomitant]
     Active Substance: LATANOPROST
  5. ALEVE [Suspect]
     Active Substance: NAPROXEN SODIUM
     Indication: BACK PAIN
     Dosage: 4 DF, UNK
     Route: 048
     Dates: start: 20140705
  6. ALEVE [Suspect]
     Active Substance: NAPROXEN SODIUM
     Indication: BACK PAIN
     Dosage: 4 DF, UNK
     Route: 048
     Dates: start: 20140704

REACTIONS (3)
  - Extra dose administered [None]
  - Incorrect drug administration duration [None]
  - Extra dose administered [None]

NARRATIVE: CASE EVENT DATE: 20140623
